FAERS Safety Report 17193770 (Version 4)
Quarter: 2020Q2

REPORT INFORMATION
  Report Type: Report from Study
  Country: US (occurrence: US)
  Receive Date: 20191223
  Receipt Date: 20200511
  Transmission Date: 20200713
  Serious: Yes (Hospitalization)
  Sender: FDA-Public Use
  Company Number: US-ACTELION-A-US2019-195711

PATIENT
  Sex: Female
  Weight: 82.99 kg

DRUGS (2)
  1. OPSUMIT [Suspect]
     Active Substance: MACITENTAN
     Indication: PULMONARY ARTERIAL HYPERTENSION
     Dosage: 10 MG, QD
     Route: 048
  2. ADEMPAS [Concomitant]
     Active Substance: RIOCIGUAT
     Dosage: 2.5 MG, TID

REACTIONS (8)
  - Smoke sensitivity [Unknown]
  - Nausea [Unknown]
  - Dyspepsia [Unknown]
  - Influenza [Unknown]
  - Catheterisation cardiac [Unknown]
  - Pain [Unknown]
  - Hypoxia [Unknown]
  - Herpes zoster [Unknown]
